FAERS Safety Report 8589897-1 (Version None)
Quarter: 2012Q3

REPORT INFORMATION
  Report Type: 
  Country: None (occurrence: None)
  Receive Date: 20120813
  Receipt Date: 19881031
  Transmission Date: 20120928
  Serious: Yes (Hospitalization, Other)
  Sender: FDA-Public Use
  Company Number: US-ROCHE-1097887

PATIENT
  Age: 57 Year
  Sex: Female

DRUGS (4)
  1. ACTIVASE [Suspect]
     Indication: MYOCARDIAL INFARCTION
     Route: 042
  2. NITRO-DUR [Concomitant]
  3. CARDIZEM [Concomitant]
  4. DEMEROL [Concomitant]

REACTIONS (2)
  - REPERFUSION ARRHYTHMIA [None]
  - CHEST DISCOMFORT [None]
